FAERS Safety Report 7011707-4 (Version None)
Quarter: 2010Q3

REPORT INFORMATION
  Report Type: 
  Country: None (occurrence: None)
  Receive Date: 20100923
  Receipt Date: 20090415
  Transmission Date: 20110219
  Serious: No
  Sender: FDA-Public Use
  Company Number: US-WYE-H08978809

PATIENT
  Sex: Female

DRUGS (1)
  1. PREMARIN [Suspect]
     Indication: VULVOVAGINAL DRYNESS
     Dosage: 0.25 - 2 GM 3 TIMES PER WEEK
     Route: 067
     Dates: start: 20040101

REACTIONS (2)
  - VAGINITIS BACTERIAL [None]
  - VULVOVAGINAL MYCOTIC INFECTION [None]
